FAERS Safety Report 16483650 (Version 1)
Quarter: 2019Q2

REPORT INFORMATION
  Report Type: Spontaneous
  Country: US (occurrence: US)
  Receive Date: 20190627
  Receipt Date: 20190627
  Transmission Date: 20190711
  Serious: Yes (Death, Hospitalization, Other)
  Sender: FDA-Public Use
  Company Number: US-AMGEN-USASP2019100493

PATIENT
  Age: 72 Year
  Sex: Female

DRUGS (1)
  1. BLINCYTO [Suspect]
     Active Substance: BLINATUMOMAB
     Indication: ACUTE LYMPHOCYTIC LEUKAEMIA
     Dosage: UNK,CONTINUOUS INFUSION - CYCLE 1
     Route: 065

REACTIONS (4)
  - Mental status changes [Fatal]
  - Acute lymphocytic leukaemia recurrent [Fatal]
  - Confusional state [Fatal]
  - Incontinence [Fatal]
